FAERS Safety Report 17191791 (Version 1)
Quarter: 2019Q4

REPORT INFORMATION
  Report Type: Spontaneous
  Country: HR (occurrence: HR)
  Receive Date: 20191223
  Receipt Date: 20191223
  Transmission Date: 20200122
  Serious: Yes (Other)
  Sender: FDA-Public Use
  Company Number: HR-009507513-1912HRV009481

PATIENT
  Sex: Female

DRUGS (5)
  1. HELEX [Concomitant]
     Active Substance: ALPRAZOLAM
     Dosage: UNK
  2. ATENOLOL. [Concomitant]
     Active Substance: ATENOLOL
     Dosage: UNK
  3. DUORESP [Concomitant]
     Active Substance: BUDESONIDE\FORMOTEROL
     Dosage: UNK
  4. KEYTRUDA [Suspect]
     Active Substance: PEMBROLIZUMAB
     Indication: LUNG NEOPLASM MALIGNANT
     Dosage: UNK
     Dates: start: 20180424
  5. TENOX (AMLODIPINE MALEATE) [Concomitant]
     Active Substance: AMLODIPINE MALEATE
     Dosage: UNK

REACTIONS (7)
  - Pleural effusion [Unknown]
  - Spinal compression fracture [Unknown]
  - Hypothyroidism [Unknown]
  - Tissue infiltration [Unknown]
  - Radiation pneumonitis [Unknown]
  - Osteoporosis [Unknown]
  - Lymphadenopathy [Unknown]

NARRATIVE: CASE EVENT DATE: 20180727
